FAERS Safety Report 16023487 (Version 1)
Quarter: 2019Q1

REPORT INFORMATION
  Report Type: Spontaneous
  Country: US (occurrence: US)
  Receive Date: 20190301
  Receipt Date: 20190301
  Transmission Date: 20190418
  Serious: Yes (Hospitalization)
  Sender: FDA-Public Use
  Company Number: US-PFIZER INC-2019086834

PATIENT
  Age: 74 Year
  Sex: Male

DRUGS (11)
  1. KETAMINE HCL [Suspect]
     Active Substance: KETAMINE HYDROCHLORIDE
     Dosage: UNK (LOWER DOSE)
  2. KETAMINE HCL [Suspect]
     Active Substance: KETAMINE HYDROCHLORIDE
     Indication: WITHDRAWAL SYNDROME
     Dosage: 10 MG, UNK (10 MG/H)
  3. PREGABALIN. [Concomitant]
     Active Substance: PREGABALIN
     Dosage: 50 MG, UNK (WITH LUNCH)
  4. PREGABALIN. [Concomitant]
     Active Substance: PREGABALIN
     Dosage: 150 UNK, EVERY 12 HOURS
  5. ACETAMINOPHEN. [Concomitant]
     Active Substance: ACETAMINOPHEN
     Indication: BACK PAIN
     Dosage: 1000 MG, 4X/DAY, EVERY 6 HOURS
  6. MORPHINE SULFATE. [Concomitant]
     Active Substance: MORPHINE SULFATE
     Indication: BACK PAIN
     Dosage: 30 MG, 3X/DAY, IMMEDIATE-RELEASE
     Route: 048
  7. KADIAN [Concomitant]
     Active Substance: MORPHINE SULFATE
     Indication: BACK PAIN
     Dosage: 100 MG, 3X/DAY (EVERY 8 HOURS)
  8. MORPHINE SULFATE. [Concomitant]
     Active Substance: MORPHINE SULFATE
     Dosage: 27 MG, UNK
     Route: 048
  9. DICLOFENAC [Concomitant]
     Active Substance: DICLOFENAC
     Indication: BACK PAIN
     Dosage: UNK (1% GEL AS NEEDED)
  10. CLONIDINE. [Concomitant]
     Active Substance: CLONIDINE
     Indication: BACK PAIN
     Dosage: UNK (PATCH)
  11. PREGABALIN. [Concomitant]
     Active Substance: PREGABALIN
     Indication: BACK PAIN
     Dosage: 100 MG, UNK (EVERY 12 HOURS)

REACTIONS (2)
  - Sedation [Recovered/Resolved]
  - Hallucination [Recovered/Resolved]
